FAERS Safety Report 19931005 (Version 1)
Quarter: 2021Q4

REPORT INFORMATION
  Report Type: Report from Study
  Country: US (occurrence: US)
  Receive Date: 20211007
  Receipt Date: 20211007
  Transmission Date: 20220303
  Serious: Yes (Hospitalization)
  Sender: FDA-Public Use
  Company Number: US-PFIZER INC-202101295750

PATIENT
  Age: 68 Year
  Sex: Male

DRUGS (7)
  1. CYTARABINE [Suspect]
     Active Substance: CYTARABINE
     Indication: Diffuse large B-cell lymphoma
     Dosage: UNK
     Route: 042
     Dates: start: 20210917, end: 20210917
  2. OXALIPLATIN [Suspect]
     Active Substance: OXALIPLATIN
     Indication: Diffuse large B-cell lymphoma
     Dosage: CONCENTRATE FOR SOLUTION FOR INFUSION
     Route: 042
     Dates: start: 20210917, end: 20210917
  3. RITUXIMAB [Suspect]
     Active Substance: RITUXIMAB
     Indication: Diffuse large B-cell lymphoma
     Dosage: UNK, 1X/DAY, CONCENTRATE FOR SOLUTION FOR INFUSION
     Route: 042
     Dates: start: 20210917, end: 20210917
  4. EPCORITAMAB [Suspect]
     Active Substance: EPCORITAMAB
     Indication: Diffuse large B-cell lymphoma
     Dosage: DUOBODY-CD3XCD20, PRIMING DOSE: 0.16 MG, SINGLE
     Route: 058
     Dates: start: 20210824, end: 20210824
  5. EPCORITAMAB [Suspect]
     Active Substance: EPCORITAMAB
     Dosage: DUOBODY-CD3XCD20, INTERMEDIATE DOSE: 0.8 MG, SINGLE
     Route: 058
     Dates: start: 20210909, end: 20210909
  6. EPCORITAMAB [Suspect]
     Active Substance: EPCORITAMAB
     Dosage: DUOBODY-CD3XCD20, FULL DOSE: 48 MG, WEEKLY
     Route: 058
     Dates: start: 20210917, end: 20210917
  7. DEXAMETHASONE [Suspect]
     Active Substance: DEXAMETHASONE
     Indication: Diffuse large B-cell lymphoma
     Dosage: SOLUTION FOR INJECTION/INFUSION
     Route: 042
     Dates: start: 20210917, end: 20210917

REACTIONS (1)
  - Cytokine release syndrome [Recovered/Resolved]

NARRATIVE: CASE EVENT DATE: 20210918
